FAERS Safety Report 6970474-0 (Version None)
Quarter: 2010Q3

REPORT INFORMATION
  Report Type: 
  Country: None (occurrence: None)
  Receive Date: 20100903
  Receipt Date: 20100824
  Transmission Date: 20110219
  Serious: Yes (Death)
  Sender: FDA-Public Use
  Company Number: BR-001273

PATIENT
  Sex: Female

DRUGS (1)
  1. NAGLAZYME [Suspect]
     Indication: MUCOPOLYSACCHARIDOSIS VI
     Dosage: (25 MG 1X/WEEK INTRAVENOUS DRIP)
     Route: 041
     Dates: start: 20081001

REACTIONS (1)
  - CARDIO-RESPIRATORY ARREST [None]
